FAERS Safety Report 14259921 (Version 1)
Quarter: 2017Q4

REPORT INFORMATION
  Report Type: Spontaneous
  Country: US (occurrence: US)
  Receive Date: 20171207
  Receipt Date: 20171207
  Transmission Date: 20180321
  Serious: No
  Sender: FDA-Public Use
  Company Number: US-VIFOR (INTERNATIONAL) INC.-VIT-2017-10739

PATIENT
  Age: 67 Year
  Sex: Male

DRUGS (15)
  1. FUROSEMIDE. [Concomitant]
     Active Substance: FUROSEMIDE
  2. OMEPRAZOLE. [Concomitant]
     Active Substance: OMEPRAZOLE
  3. LOVASTATIN. [Concomitant]
     Active Substance: LOVASTATIN
  4. ACETYLSALICYLIC ACID [Concomitant]
     Active Substance: ASPIRIN
  5. DOXAZOSIN MESILATE [Concomitant]
     Active Substance: DOXAZOSIN MESYLATE
  6. OSTEO BI-FLEX ADV DOUBLE ST [Concomitant]
  7. CARVEDILOL. [Concomitant]
     Active Substance: CARVEDILOL
  8. VELTASSA [Suspect]
     Active Substance: PATIROMER
     Indication: HYPERKALAEMIA
     Route: 048
  9. CALCITRIOL. [Concomitant]
     Active Substance: CALCITRIOL
  10. LISINOPRIL. [Concomitant]
     Active Substance: LISINOPRIL
  11. FENOFIBRATE. [Concomitant]
     Active Substance: FENOFIBRATE
  12. GLIPIZIDE. [Concomitant]
     Active Substance: GLIPIZIDE
  13. PERCOCET [Concomitant]
     Active Substance: ACETAMINOPHEN\OXYCODONE HYDROCHLORIDE
  14. CARDURA [Concomitant]
     Active Substance: DOXAZOSIN MESYLATE
  15. ANDROGEL [Concomitant]
     Active Substance: TESTOSTERONE

REACTIONS (2)
  - Pruritus [Unknown]
  - Asthenia [Unknown]

NARRATIVE: CASE EVENT DATE: 20171010
